FAERS Safety Report 8811543 (Version 1)
Quarter: 2012Q4

REPORT INFORMATION
  Report Type: Spontaneous
  Country: US (occurrence: None)
  Receive Date: 20120926
  Receipt Date: 20120926
  Transmission Date: 20130627
  Serious: Yes (Other)
  Sender: FDA-Public Use
  Company Number: None

PATIENT
  Age: 72 Year
  Sex: Male
  Weight: 77.11 kg

DRUGS (1)
  1. CRESTOR [Suspect]

REACTIONS (7)
  - Paralysis [None]
  - Myalgia [None]
  - Pain in extremity [None]
  - Pain in extremity [None]
  - Intervertebral disc protrusion [None]
  - Muscular weakness [None]
  - Adverse reaction [None]
